FAERS Safety Report 10636794 (Version 1)
Quarter: 2014Q4

REPORT INFORMATION
  Report Type: Spontaneous
  Country: CA (occurrence: CA)
  Receive Date: 20141208
  Receipt Date: 20141208
  Transmission Date: 20150529
  Serious: Yes (Other)
  Sender: FDA-Public Use
  Company Number: CA-ROCHE-1502869

PATIENT
  Age: 54 Year
  Sex: Female

DRUGS (4)
  1. TYKERB [Suspect]
     Active Substance: LAPATINIB DITOSYLATE
     Indication: PRODUCT USED FOR UNKNOWN INDICATION
     Route: 048
  2. HERCEPTIN [Suspect]
     Active Substance: TRASTUZUMAB
     Indication: PRODUCT USED FOR UNKNOWN INDICATION
     Route: 042
  3. CALCIUM CARBONATE. [Concomitant]
     Active Substance: CALCIUM CARBONATE
  4. XELODA [Suspect]
     Active Substance: CAPECITABINE
     Indication: PRODUCT USED FOR UNKNOWN INDICATION
     Route: 048

REACTIONS (28)
  - Inflammation [Unknown]
  - Lymphadenopathy [Unknown]
  - Weight decreased [Unknown]
  - Dry skin [Unknown]
  - Gait disturbance [Unknown]
  - Ocular hyperaemia [Unknown]
  - Paraesthesia [Unknown]
  - Therapeutic response unexpected [Unknown]
  - Gastrointestinal disorder [Unknown]
  - Abdominal pain [Unknown]
  - Diarrhoea [Unknown]
  - Photosensitivity reaction [Unknown]
  - Pruritus [Unknown]
  - Tinnitus [Unknown]
  - Feeling hot [Unknown]
  - Headache [Unknown]
  - Hyperaesthesia [Unknown]
  - Metastases to lymph nodes [Unknown]
  - Rash erythematous [Unknown]
  - Erythema [Unknown]
  - Increased appetite [Unknown]
  - Infection [Unknown]
  - Lacrimation increased [Unknown]
  - Abdominal symptom [Unknown]
  - Constipation [Unknown]
  - Decreased appetite [Unknown]
  - Fatigue [Unknown]
  - Sensation of blood flow [Unknown]
